FAERS Safety Report 23928075 (Version 1)
Quarter: 2024Q2

REPORT INFORMATION
  Report Type: Spontaneous
  Country: US (occurrence: US)
  Receive Date: 20240531
  Receipt Date: 20240531
  Transmission Date: 20240716
  Serious: No
  Sender: FDA-Public Use
  Company Number: US-RADIUS HEALTH INC.-2023US002683

PATIENT
  Sex: Female

DRUGS (1)
  1. TYMLOS [Suspect]
     Active Substance: ABALOPARATIDE
     Indication: Senile osteoporosis
     Dosage: 80 MICROGRAM, QD
     Route: 058
     Dates: start: 202303

REACTIONS (7)
  - Anxiety [Unknown]
  - Chest discomfort [Unknown]
  - Myalgia [Unknown]
  - Nausea [Unknown]
  - Headache [Unknown]
  - Arthralgia [Unknown]
  - Product dose omission issue [Unknown]
